FAERS Safety Report 7481025-9 (Version None)
Quarter: 2011Q2

REPORT INFORMATION
  Report Type: 
  Country: None (occurrence: None)
  Receive Date: 20110516
  Receipt Date: 20110510
  Transmission Date: 20111010
  Serious: Yes (Hospitalization)
  Sender: FDA-Public Use
  Company Number: US-BRISTOL-MYERS SQUIBB COMPANY-15731243

PATIENT
  Age: 44 Year
  Sex: Female
  Weight: 89 kg

DRUGS (1)
  1. YERVOY [Suspect]
     Indication: MALIGNANT MELANOMA
     Dosage: LAST DOSE:14APR2011 10MG/KG IV OVER 90MIN
     Route: 042
     Dates: start: 20110414

REACTIONS (1)
  - TUMOUR PAIN [None]
